FAERS Safety Report 8408059-1 (Version None)
Quarter: 2012Q2

REPORT INFORMATION
  Report Type: 
  Country: None (occurrence: None)
  Receive Date: 20120601
  Receipt Date: 20120601
  Transmission Date: 20120825
  Serious: Yes (Other)
  Sender: FDA-Public Use
  Company Number: None

PATIENT
  Age: 16 Year
  Sex: Female
  Weight: 56.246 kg

DRUGS (1)
  1. SOLODYN [Suspect]
     Indication: ACNE
     Dosage: 65 QD PO ABOUT 2 MONTHS APPROX JAN 29 2012 TO  APPROX MARCH 28 2012
     Route: 048

REACTIONS (12)
  - FATIGUE [None]
  - DECREASED APPETITE [None]
  - MALAISE [None]
  - TONSILLAR INFLAMMATION [None]
  - ODYNOPHAGIA [None]
  - HEADACHE [None]
  - WEIGHT DECREASED [None]
  - SINUSITIS [None]
  - INCREASED TENDENCY TO BRUISE [None]
  - INFECTIOUS MONONUCLEOSIS [None]
  - ABDOMINAL PAIN UPPER [None]
  - INFLUENZA [None]
